FAERS Safety Report 17550694 (Version 1)
Quarter: 2020Q1

REPORT INFORMATION
  Report Type: Spontaneous
  Country: IT (occurrence: IT)
  Receive Date: 20200317
  Receipt Date: 20200317
  Transmission Date: 20200409
  Serious: Yes (Other)
  Sender: FDA-Public Use
  Company Number: IT-MYLANLABS-2020M1028092

PATIENT
  Age: 65 Year
  Sex: Male
  Weight: 62 kg

DRUGS (3)
  1. DEURSIL [Concomitant]
     Active Substance: URSODIOL
     Dosage: 450 MILLIGRAM, QD
  2. EVEROLIMUS. [Suspect]
     Active Substance: EVEROLIMUS
     Indication: NEUROENDOCRINE TUMOUR
     Dosage: 10 MILLIGRAM, QD
     Route: 048
     Dates: start: 20190827
  3. IPSTYL [Concomitant]
     Active Substance: LANREOTIDE ACETATE
     Indication: NEUROENDOCRINE TUMOUR
     Dosage: 120 MILLIGRAM, CYCLE
     Route: 048

REACTIONS (2)
  - Erysipelas [Recovering/Resolving]
  - Inflammation [Recovering/Resolving]

NARRATIVE: CASE EVENT DATE: 20200218
